FAERS Safety Report 25832075 (Version 1)
Quarter: 2025Q3

REPORT INFORMATION
  Report Type: Report from Study
  Country: GB (occurrence: GB)
  Receive Date: 20250922
  Receipt Date: 20250922
  Transmission Date: 20251020
  Serious: Yes (Hospitalization)
  Sender: ABBVIE
  Company Number: GB-ABBVIE-6467651

PATIENT
  Sex: Female

DRUGS (1)
  1. SKYRIZI [Suspect]
     Active Substance: RISANKIZUMAB-RZAA
     Indication: Crohn^s disease
     Dosage: MISSED DOSE, FORM STRENGTH: SKYRIZI 360MG/2.4ML, DOSE: 1.00 EA, DOSE FORM: SOLUTION FOR INJECTION...
     Route: 058

REACTIONS (4)
  - Dehydration [Unknown]
  - Hypotension [Unknown]
  - Immunodeficiency [Unknown]
  - Short-bowel syndrome [Unknown]
